FAERS Safety Report 8046893-0 (Version None)
Quarter: 2012Q1

REPORT INFORMATION
  Report Type: 
  Country: None (occurrence: None)
  Receive Date: 20120116
  Receipt Date: 20120110
  Transmission Date: 20120608
  Serious: No
  Sender: FDA-Public Use
  Company Number: US-BAYER-2012-000771

PATIENT
  Age: 61 Year
  Sex: Female

DRUGS (1)
  1. NEXAVAR [Suspect]
     Indication: RENAL CELL CARCINOMA
     Dosage: 400 MG, BID
     Route: 048
     Dates: start: 20111226

REACTIONS (13)
  - RASH [None]
  - OROPHARYNGEAL PAIN [None]
  - DYSPHAGIA [None]
  - PRURITUS [None]
  - LYMPH NODE PAIN [None]
  - NAUSEA [None]
  - BUCCAL MUCOSAL ROUGHENING [None]
  - PAIN IN EXTREMITY [None]
  - PAIN OF SKIN [None]
  - ORAL PAIN [None]
  - ERYTHEMA [None]
  - GLOSSODYNIA [None]
  - LYMPHADENOPATHY [None]
